FAERS Safety Report 4973904-9 (Version None)
Quarter: 2006Q2

REPORT INFORMATION
  Report Type: 
  Country: None (occurrence: None)
  Receive Date: 20060417
  Receipt Date: 20060410
  Transmission Date: 20061013
  Serious: Yes (Hospitalization)
  Sender: FDA-Public Use
  Company Number: FR-AVENTIS-200611365FR

PATIENT
  Age: 81 Year
  Sex: Female

DRUGS (2)
  1. LOVENOX [Suspect]
     Route: 058
     Dates: start: 20060108, end: 20060111
  2. LOVENOX [Suspect]
     Route: 058
     Dates: start: 20060119

REACTIONS (4)
  - ANURIA [None]
  - HAEMATOMA [None]
  - INTESTINAL INFARCTION [None]
  - RENAL FAILURE ACUTE [None]
